FAERS Safety Report 4874497-7 (Version None)
Quarter: 2006Q1

REPORT INFORMATION
  Report Type: 
  Country: None (occurrence: None)
  Receive Date: 20060105
  Receipt Date: 20060105
  Transmission Date: 20060701
  Serious: Yes (Life-Threatening, Hospitalization)
  Sender: FDA-Public Use
  Company Number: None

PATIENT
  Age: 38 Year
  Sex: Female
  Weight: 85.2762 kg

DRUGS (1)
  1. LAMICTAL [Suspect]

REACTIONS (2)
  - EYE DISORDER [None]
  - STEVENS-JOHNSON SYNDROME [None]
